FAERS Safety Report 8392438-5 (Version None)
Quarter: 2012Q2

REPORT INFORMATION
  Report Type: 
  Country: None (occurrence: None)
  Receive Date: 20120529
  Receipt Date: 20120514
  Transmission Date: 20120825
  Serious: Yes (Other)
  Sender: FDA-Public Use
  Company Number: IT-ROCHE-1071456

PATIENT

DRUGS (2)
  1. DOCETAXEL [Suspect]
     Indication: PROSTATE CANCER METASTATIC
     Route: 042
  2. AVASTIN [Suspect]
     Indication: PROSTATE CANCER METASTATIC
     Route: 042

REACTIONS (6)
  - EPISTAXIS [None]
  - NAIL DISORDER [None]
  - ANAEMIA [None]
  - FATIGUE [None]
  - NEUTROPENIA [None]
  - THROMBOCYTOPENIA [None]
